FAERS Safety Report 5565374-7 (Version None)
Quarter: 2007Q4

REPORT INFORMATION
  Report Type: 
  Country: None (occurrence: None)
  Receive Date: 20071218
  Receipt Date: 20071206
  Transmission Date: 20080405
  Serious: Yes (Other)
  Sender: FDA-Public Use
  Company Number: US-PFIZER INC-2006099748

PATIENT
  Sex: Female
  Weight: 61.7 kg

DRUGS (11)
  1. LYRICA [Suspect]
     Indication: ANXIETY DISORDER
  2. NEURONTIN [Suspect]
     Indication: POOR QUALITY SLEEP
  3. KLONOPIN [Concomitant]
  4. PROZAC [Concomitant]
  5. ALL OTHER THERAPEUTIC PRODUCTS [Concomitant]
  6. DULCOLAX [Concomitant]
  7. ZETIA [Concomitant]
     Indication: BLOOD CHOLESTEROL INCREASED
  8. ESTRACE [Concomitant]
  9. PROGESTERONE [Concomitant]
  10. VICODIN [Concomitant]
     Indication: PAIN IN EXTREMITY
  11. VICODIN [Concomitant]
     Indication: BACK PAIN

REACTIONS (11)
  - ANXIETY [None]
  - BACK INJURY [None]
  - CONSTIPATION [None]
  - DRUG INEFFECTIVE [None]
  - EYE INFECTION [None]
  - EYE PAIN [None]
  - FALL [None]
  - FRACTURED SACRUM [None]
  - INTRAOCULAR PRESSURE INCREASED [None]
  - NERVOUSNESS [None]
  - RIB FRACTURE [None]
